FAERS Safety Report 6016598-6 (Version None)
Quarter: 2008Q4

REPORT INFORMATION
  Report Type: 
  Country: None (occurrence: None)
  Receive Date: 20081222
  Receipt Date: 20081211
  Transmission Date: 20090506
  Serious: Yes (Other)
  Sender: FDA-Public Use
  Company Number: PHHY2008BR31603

PATIENT
  Age: 49 Year
  Sex: Female

DRUGS (1)
  1. ZOLEDRONIC ACID [Suspect]
     Dosage: 5MG/100ML
     Dates: start: 20081126

REACTIONS (4)
  - ABASIA [None]
  - DRUG INEFFECTIVE [None]
  - JOINT SWELLING [None]
  - THROMBOSIS [None]
